FAERS Safety Report 16597427 (Version 1)
Quarter: 2019Q3

REPORT INFORMATION
  Report Type: Spontaneous
  Country: US (occurrence: US)
  Receive Date: 20190719
  Receipt Date: 20190719
  Transmission Date: 20191004
  Serious: No
  Sender: FDA-Public Use
  Company Number: US-PFIZER INC-2019305727

PATIENT
  Age: 65 Year
  Sex: Male
  Weight: 74.83 kg

DRUGS (1)
  1. VIAGRA [Suspect]
     Active Substance: SILDENAFIL CITRATE
     Dosage: 50 MG, UNK (I HAVE TO TAKE 2 PILLS TO MAKE THE 50 MG)

REACTIONS (2)
  - Therapeutic product effect decreased [Unknown]
  - Product dispensing error [Unknown]
